FAERS Safety Report 16674774 (Version 1)
Quarter: 2019Q3

REPORT INFORMATION
  Report Type: Spontaneous
  Country: US (occurrence: US)
  Receive Date: 20190621
  Receipt Date: 20190621
  Transmission Date: 20191004
  Serious: No
  Sender: FDA-Public Use
  Company Number: None

PATIENT
  Age: 21 Year
  Sex: Male

DRUGS (1)
  1. HUMIRA [Suspect]
     Active Substance: ADALIMUMAB
     Indication: HIDRADENITIS
     Dosage: ?          OTHER FREQUENCY:EVERY7DAYS;?
     Route: 058
     Dates: start: 20190305

REACTIONS (4)
  - Depression [None]
  - Night sweats [None]
  - Skin atrophy [None]
  - Rash [None]

NARRATIVE: CASE EVENT DATE: 20190421
